FAERS Safety Report 7226849-8 (Version None)
Quarter: 2011Q1

REPORT INFORMATION
  Report Type: 
  Country: None (occurrence: None)
  Receive Date: 20110114
  Receipt Date: 20110104
  Transmission Date: 20110831
  Serious: Yes (Hospitalization, Other)
  Sender: FDA-Public Use
  Company Number: US-NOVOPROD-318286

PATIENT
  Age: 62 Year
  Sex: Female
  Weight: 101.13 kg

DRUGS (2)
  1. LEVEMIR [Suspect]
     Indication: TYPE 2 DIABETES MELLITUS
     Dosage: 28 U IN AM 40 U IN PM
     Route: 058
     Dates: start: 20100301
  2. NOVOLOG [Suspect]
     Indication: TYPE 2 DIABETES MELLITUS
     Dosage: SLIDING SCALE BEFORE MEALS
     Dates: start: 20100310

REACTIONS (6)
  - OESOPHAGEAL ULCER [None]
  - HYPOGLYCAEMIC UNCONSCIOUSNESS [None]
  - DIABETIC COMA [None]
  - HEART RATE IRREGULAR [None]
  - RENAL FAILURE [None]
  - BLOOD GLUCOSE FLUCTUATION [None]
